FAERS Safety Report 7109902-9 (Version None)
Quarter: 2010Q4

REPORT INFORMATION
  Report Type: 
  Country: None (occurrence: None)
  Receive Date: 20101118
  Receipt Date: 20101115
  Transmission Date: 20110411
  Serious: Yes (Other)
  Sender: FDA-Public Use
  Company Number: FR-ASTRAZENECA-2010SE54354

PATIENT

DRUGS (1)
  1. LIDOCAINE HYDROCHLORIDE IN PLASTIC CONTAINER [Suspect]
     Indication: LOCAL ANAESTHESIA
     Route: 064

REACTIONS (2)
  - COMA [None]
  - CONVULSION [None]
